FAERS Safety Report 17251946 (Version 3)
Quarter: 2020Q1

REPORT INFORMATION
  Report Type: Spontaneous
  Country: FR (occurrence: FR)
  Receive Date: 20200109
  Receipt Date: 20200205
  Transmission Date: 20200409
  Serious: Yes (Life-Threatening, Hospitalization)
  Sender: FDA-Public Use
  Company Number: FR-MYLANLABS-2020M1001674

PATIENT
  Age: 67 Year
  Sex: Female
  Weight: 82 kg

DRUGS (8)
  1. SPIRONOLACTONE. [Concomitant]
     Active Substance: SPIRONOLACTONE
     Indication: CARDIAC FAILURE
     Dosage: 25 MILLIGRAM, QD
     Route: 048
     Dates: end: 20190823
  2. ELIQUIS [Concomitant]
     Active Substance: APIXABAN
     Dosage: 2 DOSAGE FORM, QD
     Route: 048
     Dates: start: 20190821, end: 20190823
  3. ELIQUIS [Concomitant]
     Active Substance: APIXABAN
     Indication: ATRIAL FIBRILLATION
     Dosage: 2 DOSAGE FORM, QD
     Route: 048
     Dates: start: 20190821
  4. KALEORID LP [Concomitant]
     Active Substance: POTASSIUM CHLORIDE
     Indication: MINERAL SUPPLEMENTATION
     Dosage: 1 DOSAGE FORM, QD
     Route: 048
     Dates: start: 20190823
  5. FUROSEMIDE. [Concomitant]
     Active Substance: FUROSEMIDE
     Indication: CARDIAC FAILURE
     Dosage: 125 MILLIGRAM, QD
     Route: 048
     Dates: end: 20190823
  6. METFORMIN [Suspect]
     Active Substance: METFORMIN HYDROCHLORIDE
     Indication: INSULIN-REQUIRING TYPE 2 DIABETES MELLITUS
     Dosage: 2 GRAM, QD
     Route: 048
     Dates: end: 20190823
  7. BISOPROLOL                         /00802602/ [Concomitant]
     Active Substance: BISOPROLOL
     Indication: CARDIAC FAILURE
     Dosage: 10 MILLIGRAM, QD
     Route: 048
     Dates: end: 20190823
  8. TRESIBA [Concomitant]
     Active Substance: INSULIN DEGLUDEC
     Indication: INSULIN-REQUIRING TYPE 2 DIABETES MELLITUS
     Dosage: 16 INTERNATIONAL UNIT, QD
     Route: 058
     Dates: start: 20190821, end: 20190823

REACTIONS (9)
  - Hypotension [Recovered/Resolved]
  - Nausea [Recovered/Resolved]
  - Diarrhoea [Recovered/Resolved]
  - Vomiting [Recovered/Resolved]
  - Metabolic acidosis [Recovered/Resolved]
  - Hypoglycaemia [Recovered/Resolved]
  - Acute kidney injury [Not Recovered/Not Resolved]
  - Drug level increased [Recovered/Resolved]
  - Shock [Recovered/Resolved]

NARRATIVE: CASE EVENT DATE: 20190822
